FAERS Safety Report 5720755-3 (Version None)
Quarter: 2008Q2

REPORT INFORMATION
  Report Type: 
  Country: None (occurrence: None)
  Receive Date: 20080429
  Receipt Date: 20080422
  Transmission Date: 20081010
  Serious: Yes (Other)
  Sender: FDA-Public Use
  Company Number: PHBS2008IT04229

PATIENT
  Age: 64 Year
  Sex: Male

DRUGS (2)
  1. ZOLEDRONIC ACID [Suspect]
     Indication: METASTASES TO BONE
     Dosage: UNK, UNK
     Route: 042
     Dates: start: 20041101, end: 20050401
  2. DOCETAXEL [Concomitant]
     Dosage: WEEKLY
     Route: 065

REACTIONS (10)
  - DEBRIDEMENT [None]
  - LOCAL ANAESTHESIA [None]
  - MOUTH HAEMORRHAGE [None]
  - OSTEOMYELITIS [None]
  - OSTEONECROSIS [None]
  - PAIN IN JAW [None]
  - PARAESTHESIA [None]
  - PRIMARY SEQUESTRUM [None]
  - SEQUESTRECTOMY [None]
  - TOOTH ABSCESS [None]
